FAERS Safety Report 10396451 (Version 1)
Quarter: 2014Q3

REPORT INFORMATION
  Report Type: Spontaneous
  Country: US (occurrence: US)
  Receive Date: 20140820
  Receipt Date: 20140820
  Transmission Date: 20150326
  Serious: Yes (Other)
  Sender: FDA-Public Use
  Company Number: PHHY2014US101361

PATIENT
  Age: 19 Year
  Sex: Female

DRUGS (29)
  1. DIHYDROERGOTAMINE [Suspect]
     Active Substance: DIHYDROERGOTAMINE
     Indication: MYOCLONUS
     Route: 042
  2. PHENYTOIN. [Suspect]
     Active Substance: PHENYTOIN
     Indication: MYOCLONUS
  3. DIAZEPAM. [Suspect]
     Active Substance: DIAZEPAM
     Indication: MYOCLONUS
  4. AMITRIPTYLINE [Suspect]
     Active Substance: AMITRIPTYLINE
     Indication: MYOCLONUS
  5. LEVETIRACETAM. [Suspect]
     Active Substance: LEVETIRACETAM
     Indication: MYOCLONUS
  6. LORAZEPAM. [Suspect]
     Active Substance: LORAZEPAM
     Indication: MYOCLONUS
  7. VERAPAMIL [Suspect]
     Active Substance: VERAPAMIL HYDROCHLORIDE
     Indication: MYOCLONUS
  8. DRONABINOL. [Suspect]
     Active Substance: DRONABINOL
     Indication: MYOCLONUS
  9. FLUNARIZINE [Suspect]
     Active Substance: FLUNARIZINE
  10. SEVOFLURANE. [Concomitant]
     Active Substance: SEVOFLURANE
     Indication: MYOCLONUS
  11. VALPROIC ACID. [Suspect]
     Active Substance: VALPROIC ACID
     Indication: MYOCLONUS
  12. CARBAMAZEPINE. [Suspect]
     Active Substance: CARBAMAZEPINE
     Indication: MYOCLONUS
  13. PREGABALIN. [Suspect]
     Active Substance: PREGABALIN
     Indication: MYOCLONUS
  14. PREDNISONE. [Suspect]
     Active Substance: PREDNISONE
     Indication: MYOCLONUS
  15. NORTRIPTYLINE [Suspect]
     Active Substance: NORTRIPTYLINE
     Indication: MYOCLONUS
  16. SUMATRIPTAN [Suspect]
     Active Substance: SUMATRIPTAN
  17. PROPOFOL. [Concomitant]
     Active Substance: PROPOFOL
     Indication: MYOCLONUS
  18. CLONAZEPAM. [Suspect]
     Active Substance: CLONAZEPAM
  19. GABAPENTIN. [Suspect]
     Active Substance: GABAPENTIN
     Indication: MYOCLONUS
  20. BOTULINUM TOXIN [Suspect]
     Active Substance: BOTULINUM TOXIN TYPE A
     Indication: MYOCLONUS
     Route: 065
  21. TIZANIDINE [Suspect]
     Active Substance: TIZANIDINE
     Indication: MYOCLONUS
  22. BACLOFEN. [Suspect]
     Active Substance: BACLOFEN
     Indication: MYOCLONUS
  23. FENTANYL. [Suspect]
     Active Substance: FENTANYL
     Indication: MYOCLONUS
  24. TOPIRAMATE. [Suspect]
     Active Substance: TOPIRAMATE
     Indication: MYOCLONUS
  25. ZONISAMIDE. [Suspect]
     Active Substance: ZONISAMIDE
     Indication: MYOCLONUS
  26. DANTROLENE [Suspect]
     Active Substance: DANTROLENE
     Indication: MYOCLONUS
  27. PRILOCAINE [Suspect]
     Active Substance: PRILOCAINE
     Indication: MYOCLONUS
  28. MUSCLE RELAXANTS [Concomitant]
     Active Substance: UNSPECIFIED INGREDIENT
     Indication: MYOCLONUS
  29. KETOROLAC [Suspect]
     Active Substance: KETOROLAC\KETOROLAC TROMETHAMINE
     Indication: MYOCLONUS

REACTIONS (4)
  - Hyperammonaemic encephalopathy [Unknown]
  - Condition aggravated [Recovered/Resolved]
  - Drug ineffective [Unknown]
  - Myoclonus [Recovered/Resolved]
